FAERS Safety Report 10695595 (Version 1)
Quarter: 2015Q1

REPORT INFORMATION
  Report Type: Spontaneous
  Country: US (occurrence: None)
  Receive Date: 20150106
  Receipt Date: 20150106
  Transmission Date: 20150721
  Serious: Yes (Hospitalization)
  Sender: FDA-Public Use
  Company Number: None

PATIENT
  Age: 60 Year
  Sex: Male
  Weight: 89 kg

DRUGS (1)
  1. INTRON A [Suspect]
     Active Substance: INTERFERON ALFA-2B
     Dosage: 840 MILLION IU, THE INTERFERON IS ON HOLD AT THIS TIME
     Dates: end: 20130619

REACTIONS (2)
  - Chest pain [None]
  - Anxiety [None]

NARRATIVE: CASE EVENT DATE: 20130620
